FAERS Safety Report 5110263-5 (Version None)
Quarter: 2006Q3

REPORT INFORMATION
  Report Type: 
  Country: None (occurrence: None)
  Receive Date: 20060921
  Receipt Date: 20060823
  Transmission Date: 20061208
  Serious: Yes (Other)
  Sender: FDA-Public Use
  Company Number: JP-JPN-A200603267

PATIENT
  Sex: Female

DRUGS (5)
  1. PAXIL [Suspect]
     Indication: ANXIETY
     Dosage: 10MG PER DAY
     Route: 048
     Dates: start: 20060701, end: 20060801
  2. DEPROMEL [Suspect]
     Indication: ANXIETY
     Route: 048
     Dates: start: 20060801, end: 20060801
  3. MEILAX [Suspect]
     Indication: ANXIETY
     Route: 048
     Dates: start: 20060701, end: 20060801
  4. DOGMATYL [Suspect]
     Indication: DEPRESSION
     Route: 048
     Dates: start: 20060701
  5. TOLEDOMIN [Concomitant]
     Route: 048

REACTIONS (4)
  - CONFUSIONAL STATE [None]
  - DELIRIUM [None]
  - DYSPHONIA [None]
  - MEMORY IMPAIRMENT [None]
